FAERS Safety Report 5813503-X (Version None)
Quarter: 2008Q3

REPORT INFORMATION
  Report Type: 
  Country: None (occurrence: None)
  Receive Date: 20080717
  Receipt Date: 20080707
  Transmission Date: 20090109
  Serious: Yes (Life-Threatening, Hospitalization, Disabling)
  Sender: FDA-Public Use
  Company Number: CN-ELI_LILLY_AND_COMPANY-CN200807001116

PATIENT
  Sex: Male
  Weight: 60 kg

DRUGS (6)
  1. ALIMTA [Suspect]
     Indication: PLEURAL MESOTHELIOMA MALIGNANT
     Dosage: 500 MG, OTHER
     Route: 042
     Dates: start: 20080704, end: 20080704
  2. CISPLATIN [Concomitant]
     Indication: PLEURAL MESOTHELIOMA MALIGNANT
     Dosage: 80 ML, OTHER
     Route: 042
     Dates: start: 20080704, end: 20080704
  3. DEXAMETHASONE [Concomitant]
     Indication: PREMEDICATION
     Dosage: 4.5 MG, OTHER
     Route: 048
  4. PROMETHAZINE [Concomitant]
     Indication: PREMEDICATION
     Dosage: 25 MG, UNKNOWN
     Route: 030
  5. FOLIC ACID [Concomitant]
     Indication: SUPPLEMENTATION THERAPY
     Dosage: UNK, UNKNOWN
     Route: 065
  6. VITAMIN B-12 [Concomitant]
     Indication: SUPPLEMENTATION THERAPY
     Dosage: UNK, UNKNOWN
     Route: 065

REACTIONS (1)
  - ANAPHYLACTIC REACTION [None]
